FAERS Safety Report 7827478-5 (Version None)
Quarter: 2011Q4

REPORT INFORMATION
  Report Type: 
  Country: None (occurrence: None)
  Receive Date: 20111020
  Receipt Date: 20111019
  Transmission Date: 20120403
  Serious: Yes (Hospitalization, Other)
  Sender: FDA-Public Use
  Company Number: US-ROCHE-795900

PATIENT
  Sex: Female
  Weight: 45.4 kg

DRUGS (9)
  1. ACCUTANE [Suspect]
     Indication: PRODUCT USED FOR UNKNOWN INDICATION
     Route: 065
     Dates: start: 19960601, end: 19980501
  2. PAXIL [Concomitant]
     Route: 065
  3. ACCUTANE [Suspect]
     Route: 048
  4. PREDNISONE [Concomitant]
     Route: 065
  5. SYNTHROID [Concomitant]
     Route: 065
  6. IMURAN [Concomitant]
     Route: 065
  7. ACCUTANE [Suspect]
     Route: 065
  8. PENTASA [Concomitant]
     Route: 065
  9. IRON [Concomitant]
     Route: 065

REACTIONS (6)
  - LIP DRY [None]
  - INJURY [None]
  - INFLAMMATORY BOWEL DISEASE [None]
  - POLYP [None]
  - DEPRESSION [None]
  - COLITIS ULCERATIVE [None]
